FAERS Safety Report 9592076 (Version 3)
Quarter: 2013Q4

REPORT INFORMATION
  Report Type: Spontaneous
  Country: GB (occurrence: GB)
  Receive Date: 20131004
  Receipt Date: 20131018
  Transmission Date: 20140711
  Serious: Yes (Death)
  Sender: FDA-Public Use
  Company Number: GB-MERCK-1308GBR000606

PATIENT
  Sex: Male

DRUGS (1)
  1. SINEMET 62.5 [Suspect]
     Dosage: UNK
     Route: 048

REACTIONS (4)
  - Dysphagia [Unknown]
  - Asthenia [Unknown]
  - Death [Fatal]
  - Parkinson^s disease [Fatal]
